FAERS Safety Report 21837302 (Version 1)
Quarter: 2023Q1

REPORT INFORMATION
  Report Type: Spontaneous
  Country: US (occurrence: US)
  Receive Date: 20230109
  Receipt Date: 20230109
  Transmission Date: 20230418
  Serious: No
  Sender: FDA-Public Use
  Company Number: US-PFIZER INC-202300003416

PATIENT
  Age: 64 Year
  Sex: Male

DRUGS (6)
  1. PAXLOVID [Suspect]
     Active Substance: NIRMATRELVIR\RITONAVIR
     Indication: COVID-19 treatment
     Dosage: UNK
     Dates: start: 20221224, end: 20221229
  2. WARFARIN [Concomitant]
     Active Substance: WARFARIN
  3. LATANOPROST [Concomitant]
     Active Substance: LATANOPROST
  4. ATORVASTATIN [Concomitant]
     Active Substance: ATORVASTATIN
  5. TIMOPTIC [Concomitant]
     Active Substance: TIMOLOL MALEATE
  6. HYDROCHLOROTHIAZIDE [Concomitant]
     Active Substance: HYDROCHLOROTHIAZIDE

REACTIONS (2)
  - Disease recurrence [Unknown]
  - COVID-19 [Unknown]

NARRATIVE: CASE EVENT DATE: 20230101
